FAERS Safety Report 22699904 (Version 9)
Quarter: 2023Q4

REPORT INFORMATION
  Report Type: Report from Study
  Country: GB (occurrence: None)
  Receive Date: 20230713
  Receipt Date: 20231102
  Transmission Date: 20240110
  Serious: Yes (Hospitalization)
  Sender: FDA-Public Use
  Company Number: GB-ROCHE-3385116

PATIENT
  Age: 71 Year
  Sex: Male
  Weight: 73 kg

DRUGS (6)
  1. ATEZOLIZUMAB [Suspect]
     Active Substance: ATEZOLIZUMAB
     Indication: Small cell lung cancer extensive stage
     Dosage: ON 30/JUN/2023, HE RECEIVED MOST RECENT DOSE OF ATEZOLIZUMAB (1200 MG).?ON 11/AUG/2023, HE RECEIVED
     Route: 041
     Dates: start: 20230630
  2. CARBOPLATIN [Suspect]
     Active Substance: CARBOPLATIN
     Indication: Small cell lung cancer extensive stage
     Dosage: ON 30/JUN/2023, HE RECEIVED MOST RECENT DOSE OF CARBOPLATIN (400 MG).?ON 11/AUG/2023, HE RECEIVED MO
     Route: 042
     Dates: start: 20230630
  3. ETOPOSIDE [Suspect]
     Active Substance: ETOPOSIDE
     Indication: Small cell lung cancer extensive stage
     Dosage: MOST RECENT DOSE RECEIVED ON 02/JUL/2023 AND 13/AUG/2023 180 MG?ON 13/AUG/2023, HE RECEIVED MOST REC
     Route: 048
     Dates: start: 20230630
  4. ETOPOSIDE [Suspect]
     Active Substance: ETOPOSIDE
     Dosage: START AND END DATE OF MOST RECENT DOSE OF STUDY DRUG PRIOR TO AE AND SAE: 02/JUL/2023
     Route: 048
  5. FILGRASTIM [Concomitant]
     Active Substance: FILGRASTIM
     Indication: Prophylaxis
     Route: 058
     Dates: start: 20230704, end: 20230704
  6. FILGRASTIM [Concomitant]
     Active Substance: FILGRASTIM
     Route: 058
     Dates: start: 20230707, end: 20230707

REACTIONS (4)
  - Diarrhoea [Recovered/Resolved]
  - Pneumonia [Recovered/Resolved]
  - Pyrexia [Recovered/Resolved]
  - Sepsis [Recovered/Resolved]

NARRATIVE: CASE EVENT DATE: 20230704
